FAERS Safety Report 6885509-3 (Version None)
Quarter: 2010Q3

REPORT INFORMATION
  Report Type: 
  Country: None (occurrence: None)
  Receive Date: 20100729
  Receipt Date: 20080325
  Transmission Date: 20110219
  Serious: Yes (Other)
  Sender: FDA-Public Use
  Company Number: US-PFIZER INC-2008026840

PATIENT
  Sex: Male
  Weight: 68 kg

DRUGS (4)
  1. CELEBREX [Suspect]
     Indication: BONE PAIN
     Dates: start: 20050101, end: 20050101
  2. VICODIN [Concomitant]
  3. AMBIEN [Concomitant]
  4. LORAZEPAM [Concomitant]

REACTIONS (5)
  - ABDOMINAL PAIN LOWER [None]
  - ASTHENIA [None]
  - DIZZINESS [None]
  - FAECES DISCOLOURED [None]
  - HAEMORRHAGE [None]
